FAERS Safety Report 22814020 (Version 2)
Quarter: 2023Q4

REPORT INFORMATION
  Report Type: Other
  Country: JP (occurrence: JP)
  Receive Date: 20230811
  Receipt Date: 20231114
  Transmission Date: 20240109
  Serious: Yes (Death)
  Sender: FDA-Public Use
  Company Number: JP-CHUGAI-2023028872

PATIENT
  Age: 13 Year
  Sex: Male

DRUGS (1)
  1. AVASTIN [Suspect]
     Active Substance: BEVACIZUMAB
     Indication: Neurofibrosarcoma
     Dosage: UNK
     Route: 041

REACTIONS (2)
  - Off label use [Unknown]
  - Disease progression [Fatal]
